FAERS Safety Report 13321374 (Version 2)
Quarter: 2017Q1

REPORT INFORMATION
  Report Type: Report from Study
  Country: BR (occurrence: BR)
  Receive Date: 20170309
  Receipt Date: 20170314
  Transmission Date: 20170428
  Serious: Yes (Hospitalization)
  Sender: FDA-Public Use
  Company Number: PHHY2017BR034630

PATIENT
  Age: 43 Year
  Sex: Female
  Weight: 75 kg

DRUGS (2)
  1. GILENYA [Suspect]
     Active Substance: FINGOLIMOD HYDROCHLORIDE
     Dosage: 0.5 MG, 4 TIMES A WEEK
     Route: 048
     Dates: end: 20170224
  2. GILENYA [Suspect]
     Active Substance: FINGOLIMOD HYDROCHLORIDE
     Indication: MULTIPLE SCLEROSIS
     Dosage: 0.5 MG, UNK
     Route: 048

REACTIONS (15)
  - Malaise [Recovering/Resolving]
  - Diarrhoea [Unknown]
  - Pallor [Recovering/Resolving]
  - Loss of consciousness [Recovering/Resolving]
  - Headache [Not Recovered/Not Resolved]
  - Dizziness [Not Recovered/Not Resolved]
  - Gastrointestinal infection [Not Recovered/Not Resolved]
  - Dyspnoea [Recovering/Resolving]
  - Visual impairment [Recovering/Resolving]
  - Liver disorder [Recovering/Resolving]
  - Syncope [Recovering/Resolving]
  - Cold sweat [Recovering/Resolving]
  - Chest pain [Not Recovered/Not Resolved]
  - Liver function test increased [Recovering/Resolving]
  - Retching [Unknown]

NARRATIVE: CASE EVENT DATE: 20170220
